FAERS Safety Report 6892012-3 (Version None)
Quarter: 2010Q3

REPORT INFORMATION
  Report Type: 
  Country: None (occurrence: None)
  Receive Date: 20100731
  Receipt Date: 20080108
  Transmission Date: 20110219
  Serious: No
  Sender: FDA-Public Use
  Company Number: US-PFIZER INC-2008002610

PATIENT
  Sex: Male
  Weight: 140.9 kg

DRUGS (4)
  1. NEURONTIN [Suspect]
     Indication: FIBROMYALGIA
  2. LYRICA [Suspect]
     Indication: FIBROMYALGIA
     Dates: start: 20071201
  3. ULTRAM [Suspect]
     Indication: FIBROMYALGIA
     Dates: start: 20071201
  4. ZESTRIL [Concomitant]

REACTIONS (6)
  - CONSTIPATION [None]
  - DRUG INEFFECTIVE [None]
  - DYSPEPSIA [None]
  - FATIGUE [None]
  - FEELING ABNORMAL [None]
  - HYPERHIDROSIS [None]
